FAERS Safety Report 8091833-1 (Version None)
Quarter: 2012Q1

REPORT INFORMATION
  Report Type: 
  Country: None (occurrence: None)
  Receive Date: 20120129
  Receipt Date: 20111121
  Transmission Date: 20120608
  Serious: No
  Sender: FDA-Public Use
  Company Number: US-ABBOTT-11P-163-0876639-00

PATIENT
  Age: 46 Year
  Sex: Female
  Weight: 145.28 kg

DRUGS (17)
  1. TRICOR [Concomitant]
     Indication: BLOOD CHOLESTEROL INCREASED
  2. OMEPRAZOLE [Concomitant]
     Indication: GASTROOESOPHAGEAL REFLUX DISEASE
  3. CLOMIPRAMINE HCL [Concomitant]
     Indication: DEPRESSION
  4. DIOVAN [Concomitant]
     Indication: HYPERTENSION
  5. TRAMADOL HCL [Concomitant]
     Indication: BACK PAIN
  6. HUMIRA [Suspect]
     Indication: RHEUMATOID ARTHRITIS
  7. DIGOXIN [Concomitant]
     Indication: PRODUCT USED FOR UNKNOWN INDICATION
  8. METOPROLOL TARTRATE [Concomitant]
     Indication: HYPERTENSION
  9. METHOTREXATE [Concomitant]
     Indication: PRODUCT USED FOR UNKNOWN INDICATION
  10. LASIX [Concomitant]
     Indication: PRODUCT USED FOR UNKNOWN INDICATION
  11. METFORMIN HCL [Concomitant]
     Indication: DIABETES MELLITUS
  12. CLONIDINE [Concomitant]
     Indication: HYPERTENSION
  13. SIMVASTATIN [Concomitant]
     Indication: BLOOD CHOLESTEROL INCREASED
  14. FOLIC ACID [Concomitant]
     Indication: PRODUCT USED FOR UNKNOWN INDICATION
  15. MELOXICAM [Concomitant]
     Indication: BACK PAIN
  16. POTASSIUM [Concomitant]
     Indication: CARDIAC DISORDER
     Route: 048
  17. PLAVIX [Concomitant]
     Indication: PRODUCT USED FOR UNKNOWN INDICATION

REACTIONS (3)
  - NAUSEA [None]
  - WEIGHT DECREASED [None]
  - DECREASED APPETITE [None]
